FAERS Safety Report 5699876-X (Version None)
Quarter: 2008Q2

REPORT INFORMATION
  Report Type: 
  Country: None (occurrence: None)
  Receive Date: 20080410
  Receipt Date: 20080310
  Transmission Date: 20081010
  Serious: No
  Sender: FDA-Public Use
  Company Number: US-BAYER-200816504NA

PATIENT
  Sex: Female

DRUGS (3)
  1. AVELOX [Suspect]
     Indication: SINUSITIS
     Dosage: TOTAL DAILY DOSE: 400 MG  UNIT DOSE: 400 MG
     Route: 048
     Dates: start: 20080228, end: 20080307
  2. ADVAIR HFA [Concomitant]
     Indication: ASTHMA
  3. CLARITIN [Concomitant]
     Indication: ASTHMA

REACTIONS (4)
  - DIARRHOEA [None]
  - DYSPNOEA [None]
  - PALPITATIONS [None]
  - VOMITING [None]
